FAERS Safety Report 9383202 (Version 1)
Quarter: 2013Q3

REPORT INFORMATION
  Report Type: Spontaneous
  Country: US (occurrence: US)
  Receive Date: 20130704
  Receipt Date: 20130704
  Transmission Date: 20140515
  Serious: Yes (Other)
  Sender: FDA-Public Use
  Company Number: US-ASTRAZENECA-2013SE49015

PATIENT
  Age: 57 Year
  Sex: Female
  Weight: 97.5 kg

DRUGS (16)
  1. ATACAND [Suspect]
     Indication: HYPERTENSION
     Route: 048
  2. PLAQUENIL [Suspect]
     Route: 065
  3. METHOTREXATE [Suspect]
     Route: 065
  4. DEMEROL [Suspect]
     Route: 065
  5. CELEBREX [Suspect]
     Indication: PAIN
     Route: 065
  6. HYDROCODONE [Suspect]
     Route: 065
  7. CODEINE [Suspect]
     Route: 065
  8. ENBREL [Suspect]
     Route: 065
  9. HUMIRA [Suspect]
     Route: 065
  10. RITUXAN [Suspect]
     Indication: RHEUMATOID ARTHRITIS
     Dosage: EVERY SIX MONTHS
     Route: 042
     Dates: start: 20100831
  11. SULFASALAZINE [Suspect]
     Route: 065
  12. PREVACID [Concomitant]
     Indication: GASTROOESOPHAGEAL REFLUX DISEASE
     Route: 048
  13. ASPIRIN [Concomitant]
     Route: 048
  14. PAXIL [Concomitant]
     Indication: DEPRESSION
     Route: 048
  15. MAXZIDE [Concomitant]
     Indication: HYPERTENSION
     Route: 048
  16. PREDNISONE [Concomitant]
     Indication: RHEUMATOID ARTHRITIS
     Route: 048
     Dates: start: 2007

REACTIONS (14)
  - Peripheral vascular disorder [Unknown]
  - Gastric disorder [Unknown]
  - Rheumatoid arthritis [Unknown]
  - Anxiety [Unknown]
  - Malaise [Unknown]
  - Pain [Unknown]
  - Dyspepsia [Unknown]
  - Infection [Unknown]
  - Gastrooesophageal reflux disease [Unknown]
  - Depression [Unknown]
  - Acne [Unknown]
  - Drug hypersensitivity [Unknown]
  - Swelling face [Unknown]
  - Injection site reaction [Unknown]
